FAERS Safety Report 5277814-1 (Version None)
Quarter: 2007Q1

REPORT INFORMATION
  Report Type: 
  Country: None (occurrence: None)
  Receive Date: 20070321
  Receipt Date: 20070309
  Transmission Date: 20070707
  Serious: Yes (Hospitalization, Other)
  Sender: FDA-Public Use
  Company Number: 2007US000511

PATIENT
  Sex: Female

DRUGS (1)
  1. ADENOSCAN [Suspect]
     Indication: SCAN MYOCARDIAL PERFUSION

REACTIONS (7)
  - CHEST WALL ABSCESS [None]
  - DRUG HYPERSENSITIVITY [None]
  - INFECTION [None]
  - JAW DISORDER [None]
  - PAIN IN JAW [None]
  - SCREAMING [None]
  - SOFT TISSUE INFECTION [None]
